FAERS Safety Report 7111926-2 (Version None)
Quarter: 2010Q4

REPORT INFORMATION
  Report Type: 
  Country: None (occurrence: None)
  Receive Date: 20101119
  Receipt Date: 20090911
  Transmission Date: 20110411
  Serious: No
  Sender: FDA-Public Use
  Company Number: 2009BI029088

PATIENT
  Sex: Female

DRUGS (1)
  1. TYSABRI [Suspect]
     Indication: MULTIPLE SCLEROSIS
     Route: 042
     Dates: start: 20080506, end: 20090808

REACTIONS (3)
  - BACK PAIN [None]
  - GAIT DISTURBANCE [None]
  - PAIN IN EXTREMITY [None]
